FAERS Safety Report 17085443 (Version 2)
Quarter: 2019Q4

REPORT INFORMATION
  Report Type: Spontaneous
  Country: IT (occurrence: IT)
  Receive Date: 20191128
  Receipt Date: 20191219
  Transmission Date: 20200122
  Serious: Yes (Other)
  Sender: FDA-Public Use
  Company Number: IT-SUN PHARMACEUTICAL INDUSTRIES LTD-2019RR-228892

PATIENT
  Age: 43 Year
  Sex: Female
  Weight: 47 kg

DRUGS (3)
  1. LETROZOLE. [Suspect]
     Active Substance: LETROZOLE
     Indication: BREAST CANCER
     Dosage: 2.5 MILLIGRAM, DAILY
     Route: 048
     Dates: start: 20181025, end: 20190605
  2. RIBOCICLIB. [Suspect]
     Active Substance: RIBOCICLIB
     Indication: PRODUCT USED FOR UNKNOWN INDICATION
     Dosage: 400 MILLIGRAM, DAILY
     Route: 048
     Dates: start: 20181025, end: 20190501
  3. DECAPEPTYL [Concomitant]
     Indication: PRODUCT USED FOR UNKNOWN INDICATION
     Dosage: 3.75 MILLIGRAM, UNK
     Route: 065
     Dates: start: 20181025, end: 20190602

REACTIONS (1)
  - Neutropenia [Unknown]
